FAERS Safety Report 10188635 (Version 1)
Quarter: 2014Q2

REPORT INFORMATION
  Report Type: Spontaneous
  Country: US (occurrence: US)
  Receive Date: 20140522
  Receipt Date: 20140522
  Transmission Date: 20141212
  Serious: No
  Sender: FDA-Public Use
  Company Number: US-SA-2014SA034856

PATIENT
  Sex: Male

DRUGS (5)
  1. LANTUS [Suspect]
     Indication: DIABETES MELLITUS
     Dosage: DOSE:4 UNIT(S)
     Route: 058
     Dates: start: 2000
  2. LANTUS [Suspect]
     Indication: DIABETES MELLITUS
     Dosage: DOSE: 20-4
     Route: 058
  3. LANTUS [Suspect]
     Indication: DIABETES MELLITUS
     Dosage: DOSE: 40 U AM AND 42 U PM
     Route: 058
  4. METFORMIN [Concomitant]
  5. GLYBURIDE [Concomitant]

REACTIONS (4)
  - Weight increased [Unknown]
  - Blood glucose decreased [Unknown]
  - Blood glucose increased [Unknown]
  - Off label use [Unknown]
